FAERS Safety Report 19580496 (Version 1)
Quarter: 2021Q3

REPORT INFORMATION
  Report Type: Spontaneous
  Country: US (occurrence: US)
  Receive Date: 20210720
  Receipt Date: 20210720
  Transmission Date: 20211014
  Serious: Yes (Hospitalization, Other)
  Sender: FDA-Public Use
  Company Number: US-SPECGX-T202101668

PATIENT
  Age: 55 Year
  Sex: Male

DRUGS (3)
  1. HYDROCODONE/ACETAMINOPHEN [Suspect]
     Active Substance: ACETAMINOPHEN\HYDROCODONE
     Indication: PAIN
     Dosage: 1 DOSAGE FORM, Q6H
     Route: 065
  2. COCAINE [Suspect]
     Active Substance: COCAINE
     Indication: PAIN
     Dosage: UNK
     Route: 065
  3. DEXTROAMPHET SACCHARAT, AMPHET ASPARTATE, DEXTROAMPHET SULFATE AND AMPHET SULFAT [Suspect]
     Active Substance: AMPHETAMINE ASPARTATE\AMPHETAMINE SULFATE\DEXTROAMPHETAMINE SACCHARATE\DEXTROAMPHETAMINE SULFATE
     Indication: PRODUCT USED FOR UNKNOWN INDICATION
     Dosage: UNK
     Route: 065

REACTIONS (8)
  - Drug abuse [Unknown]
  - Aspartate aminotransferase increased [Recovering/Resolving]
  - Cerebral ischaemia [Unknown]
  - Learning disorder [Unknown]
  - Alanine aminotransferase increased [Recovering/Resolving]
  - Anoxia [Unknown]
  - Amnesia [Unknown]
  - Acute myocardial infarction [Unknown]
